FAERS Safety Report 12227232 (Version 2)
Quarter: 2016Q2

REPORT INFORMATION
  Report Type: Report from Study
  Country: GB (occurrence: GB)
  Receive Date: 20160331
  Receipt Date: 20160420
  Transmission Date: 20160815
  Serious: Yes (Hospitalization, Other)
  Sender: FDA-Public Use
  Company Number: GB-REGENERON PHARMACEUTICALS, INC.-2016-14740

PATIENT

DRUGS (6)
  1. BLINDED LASER [Suspect]
     Active Substance: DEVICE
     Dosage: LAST DOSE PRIOR TO EVENT ONSET
     Dates: start: 20150930, end: 20150930
  2. BLINDED LASER [Suspect]
     Active Substance: DEVICE
     Dosage: UNK
  3. BLINDED LASER [Suspect]
     Active Substance: DEVICE
     Dosage: UNK
     Dates: start: 20150311, end: 20150311
  4. EYLEA [Suspect]
     Active Substance: AFLIBERCEPT
     Dosage: UNK
     Dates: start: 20150311, end: 20150311
  5. EYLEA [Suspect]
     Active Substance: AFLIBERCEPT
     Dosage: LAST DOSE PRIOR TO EVENT ONSET
     Dates: start: 20150930, end: 20150930
  6. EYLEA [Suspect]
     Active Substance: AFLIBERCEPT
     Dosage: UNK

REACTIONS (1)
  - Viral infection [Recovered/Resolved]

NARRATIVE: CASE EVENT DATE: 20160209
